FAERS Safety Report 23987039 (Version 1)
Quarter: 2024Q2

REPORT INFORMATION
  Report Type: Spontaneous
  Country: CN (occurrence: CN)
  Receive Date: 20240618
  Receipt Date: 20240618
  Transmission Date: 20240716
  Serious: Yes (Hospitalization, Other)
  Sender: FDA-Public Use
  Company Number: CN-002147023-NVSC2024CN127077

PATIENT
  Age: 84 Year
  Sex: Female

DRUGS (4)
  1. SACUBITRIL\VALSARTAN [Suspect]
     Active Substance: SACUBITRIL\VALSARTAN
     Indication: Hypertension
     Dosage: 50 MG, QD
     Route: 048
     Dates: start: 20240301, end: 20240329
  2. MOXALACTAM [Concomitant]
     Active Substance: MOXALACTAM
     Indication: Infection
     Dosage: UNK
     Route: 065
  3. NOREPINEPHRINE [Concomitant]
     Active Substance: NOREPINEPHRINE\NOREPINEPHRINE BITARTRATE
     Indication: Hypotension
     Dosage: UNK
     Route: 065
  4. SODIUM BICARBONATE [Concomitant]
     Active Substance: SODIUM BICARBONATE
     Indication: Symptomatic treatment
     Dosage: UNK
     Route: 065

REACTIONS (9)
  - Hyperkalaemia [Recovering/Resolving]
  - Depressed level of consciousness [Unknown]
  - Loss of consciousness [Unknown]
  - Neurodegenerative disorder [Unknown]
  - Shock [Unknown]
  - Cerebral ischaemia [Unknown]
  - Tachypnoea [Unknown]
  - Chest discomfort [Unknown]
  - Off label use [Unknown]

NARRATIVE: CASE EVENT DATE: 20240301
